FAERS Safety Report 21533104 (Version 1)
Quarter: 2022Q4

REPORT INFORMATION
  Report Type: Report from Study
  Country: US (occurrence: US)
  Receive Date: 20221101
  Receipt Date: 20221101
  Transmission Date: 20230112
  Serious: No
  Sender: FDA-Public Use
  Company Number: US-ABBVIE-4161312

PATIENT
  Age: 61 Year
  Sex: Female

DRUGS (1)
  1. SKYRIZI [Suspect]
     Active Substance: RISANKIZUMAB-RZAA
     Indication: Psoriasis
     Dosage: 150 MG PEN AT WEEK 0, WEEK 4 THEN EVERY 12 WEEKS THEREAFTER. FORM STRENGTH:150 MILLIGRAM/MILLILIT...
     Route: 058
     Dates: start: 20221001

REACTIONS (4)
  - Pruritus [Not Recovered/Not Resolved]
  - Erythema [Unknown]
  - Papule [Not Recovered/Not Resolved]
  - Skin weeping [Not Recovered/Not Resolved]

NARRATIVE: CASE EVENT DATE: 20221001
